FAERS Safety Report 5359597-X (Version None)
Quarter: 2007Q2

REPORT INFORMATION
  Report Type: 
  Country: None (occurrence: None)
  Receive Date: 20070530
  Receipt Date: 20061019
  Transmission Date: 20071010
  Serious: Yes (Hospitalization)
  Sender: FDA-Public Use
  Company Number: US200606002043

PATIENT
  Age: 65 Year
  Sex: Male
  Weight: 102.9 kg

DRUGS (1)
  1. ZYPREXA [Suspect]
     Indication: DEPRESSION
     Dosage: 5 MG,
     Dates: start: 20010701, end: 20040301

REACTIONS (3)
  - BILIARY TRACT DISORDER [None]
  - DIABETES MELLITUS [None]
  - PANCREATITIS [None]
